FAERS Safety Report 7066383-1 (Version None)
Quarter: 2010Q4

REPORT INFORMATION
  Report Type: 
  Country: None (occurrence: None)
  Receive Date: 20101027
  Receipt Date: 20100429
  Transmission Date: 20110411
  Serious: No
  Sender: FDA-Public Use
  Company Number: US-WYE-H11775309

PATIENT
  Sex: Female
  Weight: 45.4 kg

DRUGS (3)
  1. PREMPRO [Suspect]
     Indication: HORMONE REPLACEMENT THERAPY
     Route: 048
     Dates: end: 20090101
  2. PREMPRO [Suspect]
     Indication: MENOPAUSE
  3. FOSAMAX [Concomitant]

REACTIONS (3)
  - METRORRHAGIA [None]
  - PRODUCT SHAPE ISSUE [None]
  - PRODUCT TASTE ABNORMAL [None]
